FAERS Safety Report 13639380 (Version 1)
Quarter: 2017Q2

REPORT INFORMATION
  Report Type: Spontaneous
  Country: US (occurrence: US)
  Receive Date: 20170609
  Receipt Date: 20170609
  Transmission Date: 20170830
  Serious: No
  Sender: FDA-Public Use
  Company Number: US-ROCHE-677629

PATIENT
  Sex: Male

DRUGS (4)
  1. KLONOPIN [Suspect]
     Active Substance: CLONAZEPAM
     Route: 048
  2. CLONAZEPAM. [Suspect]
     Active Substance: CLONAZEPAM
     Route: 048
  3. CLONAZEPAM. [Suspect]
     Active Substance: CLONAZEPAM
     Indication: ANXIETY
     Dosage: OTHER INDICATION: PANIC ATTACKS
     Route: 048
  4. KLONOPIN [Suspect]
     Active Substance: CLONAZEPAM
     Indication: ANXIETY
     Route: 048

REACTIONS (2)
  - Palpitations [Recovered/Resolved]
  - Drug use disorder [Not Recovered/Not Resolved]
